FAERS Safety Report 21345063 (Version 1)
Quarter: 2022Q3

REPORT INFORMATION
  Report Type: Spontaneous
  Country: US (occurrence: None)
  Receive Date: 20220916
  Receipt Date: 20220916
  Transmission Date: 20221026
  Serious: Yes (Disabling)
  Sender: FDA-Public Use
  Company Number: None

PATIENT
  Age: 34 Year
  Sex: Female
  Weight: 90 kg

DRUGS (2)
  1. SUBOXONE [Suspect]
     Active Substance: BUPRENORPHINE HYDROCHLORIDE\NALOXONE HYDROCHLORIDE
     Indication: Drug dependence
     Dosage: FREQUENCY : 4 TIMES A DAY?
     Route: 060
     Dates: start: 20060715, end: 20161020
  2. SUBUTEX [Suspect]
     Active Substance: BUPRENORPHINE HYDROCHLORIDE

REACTIONS (7)
  - Tooth discolouration [None]
  - Dental caries [None]
  - Tooth loss [None]
  - Fall [None]
  - Lower limb fracture [None]
  - Therapy interrupted [None]
  - Bone density decreased [None]

NARRATIVE: CASE EVENT DATE: 20100110
